FAERS Safety Report 11002837 (Version 2)
Quarter: 2015Q2

REPORT INFORMATION
  Report Type: Spontaneous
  Country: AU (occurrence: AU)
  Receive Date: 20150408
  Receipt Date: 20150515
  Transmission Date: 20150821
  Serious: Yes (Hospitalization)
  Sender: FDA-Public Use
  Company Number: AU-ABBVIE-15P-008-1372664-00

PATIENT
  Age: 47 Year
  Sex: Female

DRUGS (2)
  1. KEPPRA [Suspect]
     Active Substance: LEVETIRACETAM
     Indication: EPILEPSY
     Route: 065
     Dates: start: 2013, end: 2015
  2. EPILIM [Suspect]
     Active Substance: VALPROATE SODIUM
     Indication: EPILEPSY
     Route: 065
     Dates: end: 2015

REACTIONS (9)
  - Rhinorrhoea [Recovered/Resolved]
  - Weight decreased [Recovered/Resolved]
  - Swelling face [Recovered/Resolved]
  - Hypophagia [Recovered/Resolved]
  - Masked facies [Recovered/Resolved]
  - Tremor [Recovered/Resolved]
  - Mouth ulceration [Recovered/Resolved]
  - Amnesia [Recovered/Resolved]
  - Personality change [Recovered/Resolved]

NARRATIVE: CASE EVENT DATE: 2015
